FAERS Safety Report 9422014 (Version 1)
Quarter: 2013Q3

REPORT INFORMATION
  Report Type: Spontaneous
  Country: US (occurrence: None)
  Receive Date: 20130725
  Receipt Date: 20130725
  Transmission Date: 20140515
  Serious: Yes (Other)
  Sender: FDA-Public Use
  Company Number: None

PATIENT
  Age: 32 Year
  Sex: Male
  Weight: 78.93 kg

DRUGS (3)
  1. MONTELUKAST [Suspect]
     Indication: SEASONAL ALLERGY
     Route: 048
     Dates: start: 20130529, end: 20130711
  2. FLUTICASONE [Concomitant]
  3. 1000 IU VITAMIN D3 [Concomitant]

REACTIONS (1)
  - Weight increased [None]
